FAERS Safety Report 19247659 (Version 1)
Quarter: 2021Q2

REPORT INFORMATION
  Report Type: Spontaneous
  Country: NL (occurrence: NL)
  Receive Date: 20210512
  Receipt Date: 20210512
  Transmission Date: 20210717
  Serious: Yes (Other)
  Sender: FDA-Public Use
  Company Number: NL-TEVA-2021-NL-1909182

PATIENT
  Age: 15 Year
  Sex: Female

DRUGS (2)
  1. METHOTREXAAT TABLET  2,5MG / BRAND NAME NOT SPECIFIED [Suspect]
     Active Substance: METHOTREXATE SODIUM
     Indication: DERMATITIS ATOPIC
     Dosage: 1 X PER WEEK 20MG = 8 TABLETS,THERAPY END DATE  ASKU, 20MG
     Dates: start: 20200520
  2. BECLOMETASON/FORMOTEROL AEROSOL 200/6UG/DO / BRAND NAME NOT SPECIFIED [Concomitant]
     Dosage: AEROSOL, 200/6 UG / DOSE,THERAPY START DATE ASKU, THERAPY END DATE ASKU

REACTIONS (1)
  - Cystitis haemorrhagic [Not Recovered/Not Resolved]

NARRATIVE: CASE EVENT DATE: 20201116
